FAERS Safety Report 5048512-4 (Version None)
Quarter: 2006Q3

REPORT INFORMATION
  Report Type: 
  Country: None (occurrence: None)
  Receive Date: 20060705
  Receipt Date: 20060616
  Transmission Date: 20061208
  Serious: Yes (Other)
  Sender: FDA-Public Use
  Company Number: CA200606004276

PATIENT
  Age: 75 Year
  Sex: Female

DRUGS (8)
  1. FORTEO [Suspect]
     Indication: OSTEOPOROSIS
     Dosage: 20 UG, DAILY (1/D)
     Dates: start: 20050101
  2. FORTEO [Concomitant]
  3. ASPIRIN [Concomitant]
  4. CRESTOR [Concomitant]
  5. DESYREL [Concomitant]
  6. CITALOPRAM HYDROBROMIDE [Concomitant]
  7. MELOXICAM [Concomitant]
  8. AVAPRO [Concomitant]

REACTIONS (1)
  - RENAL IMPAIRMENT [None]
